FAERS Safety Report 25376055 (Version 3)
Quarter: 2025Q2

REPORT INFORMATION
  Report Type: Spontaneous
  Country: US (occurrence: US)
  Receive Date: 20250529
  Receipt Date: 20250609
  Transmission Date: 20250716
  Serious: Yes (Other)
  Sender: INTRABIO
  Company Number: US-IBO-202500117

PATIENT
  Age: 18 Year
  Sex: Male
  Weight: 35 kg

DRUGS (7)
  1. AQNEURSA [Suspect]
     Active Substance: ACETYLLEUCINE, L-
     Indication: Product used for unknown indication
     Route: 065
     Dates: start: 20250312
  2. ZONISAMIDE [Concomitant]
     Active Substance: ZONISAMIDE
     Indication: Product used for unknown indication
     Route: 065
  3. TRILEPTAL [Concomitant]
     Active Substance: OXCARBAZEPINE
     Indication: Product used for unknown indication
     Route: 065
  4. Polyethyl Glycol 3350 Pkt-Otc [Concomitant]
     Indication: Product used for unknown indication
     Route: 065
  5. VITAMINS [Concomitant]
     Active Substance: VITAMINS
     Indication: Product used for unknown indication
     Route: 065
  6. MIGLUSTAT [Concomitant]
     Active Substance: MIGLUSTAT
     Indication: Product used for unknown indication
     Route: 065
  7. CLONAZEPAM [Concomitant]
     Active Substance: CLONAZEPAM
     Indication: Product used for unknown indication
     Route: 065

REACTIONS (2)
  - Pneumonia [Recovered/Resolved]
  - Dysphagia [Unknown]

NARRATIVE: CASE EVENT DATE: 20250401
